FAERS Safety Report 4636064-X (Version None)
Quarter: 2005Q2

REPORT INFORMATION
  Report Type: 
  Country: None (occurrence: None)
  Receive Date: 20050415
  Receipt Date: 20050406
  Transmission Date: 20051028
  Serious: Yes (Life-Threatening)
  Sender: FDA-Public Use
  Company Number: FR-BRISTOL-MYERS SQUIBB COMPANY-12925095

PATIENT
  Age: 70 Year
  Sex: Male

DRUGS (3)
  1. MUCOMYST [Suspect]
     Indication: INFLUENZA
     Route: 048
     Dates: start: 20050406, end: 20050406
  2. PLAVIX [Concomitant]
  3. KARDEGIC [Concomitant]
     Indication: PROPHYLAXIS

REACTIONS (2)
  - ASTHENIA [None]
  - CHEST PAIN [None]
